FAERS Safety Report 6700061-0 (Version None)
Quarter: 2010Q2

REPORT INFORMATION
  Report Type: 
  Country: None (occurrence: None)
  Receive Date: 20100423
  Receipt Date: 20090418
  Transmission Date: 20101027
  Serious: Yes (Other)
  Sender: FDA-Public Use
  Company Number: 2009178750

PATIENT
  Sex: Male

DRUGS (2)
  1. GENOTROPIN [Suspect]
  2. TESTOSTERONE CIPIONATE (TESTOSTERONE CIPIONATE) [Concomitant]

REACTIONS (1)
  - BENIGN INTRACRANIAL HYPERTENSION [None]
